FAERS Safety Report 25603025 (Version 4)
Quarter: 2025Q4

REPORT INFORMATION
  Report Type: Spontaneous
  Country: US (occurrence: US)
  Receive Date: 20250724
  Receipt Date: 20251224
  Transmission Date: 20260119
  Serious: Yes (Other)
  Sender: SANOFI AVENTIS
  Company Number: US-SA-2025SA211831

PATIENT
  Age: 81 Year
  Sex: Male

DRUGS (3)
  1. DUPIXENT [Suspect]
     Active Substance: DUPILUMAB
     Indication: Asthma
     Dosage: 300 MG, QOW
     Route: 058
     Dates: start: 202410
  2. DUPIXENT [Suspect]
     Active Substance: DUPILUMAB
     Indication: Chronic obstructive pulmonary disease
     Dosage: 600 MG, 1X
     Route: 058
     Dates: start: 20250612, end: 20250612
  3. DUPIXENT [Suspect]
     Active Substance: DUPILUMAB
     Dosage: 300 MG, QOW
     Route: 058
     Dates: start: 20250627, end: 2025

REACTIONS (14)
  - Pneumonia [Unknown]
  - Product dose omission issue [Unknown]
  - Weight decreased [Unknown]
  - Decreased appetite [Unknown]
  - Dysphagia [Unknown]
  - Blood pressure decreased [Recovering/Resolving]
  - Respiratory tract infection [Unknown]
  - Cough [Not Recovered/Not Resolved]
  - Bacterial infection [Unknown]
  - Dry skin [Unknown]
  - Headache [Recovering/Resolving]
  - Skin exfoliation [Unknown]
  - Eye irritation [Recovering/Resolving]
  - Asthma [Unknown]

NARRATIVE: CASE EVENT DATE: 20250101
